FAERS Safety Report 6763885-X (Version None)
Quarter: 2010Q2

REPORT INFORMATION
  Report Type: 
  Country: None (occurrence: None)
  Receive Date: 20100610
  Receipt Date: 20100531
  Transmission Date: 20101027
  Serious: Yes (Death)
  Sender: FDA-Public Use
  Company Number: KR-PFIZER INC-2009287417

PATIENT
  Age: 69 Year
  Sex: Male
  Weight: 76 kg

DRUGS (11)
  1. VORICONAZOLE [Suspect]
     Indication: ASPERGILLOSIS
     Dosage: 400 MG, 2X/DAY
     Route: 042
     Dates: start: 20080108, end: 20080108
  2. VORICONAZOLE [Suspect]
     Dosage: 200 MG, 2X/DAY
     Route: 042
     Dates: start: 20080109, end: 20080205
  3. FILGRASTIM [Concomitant]
     Indication: NEUTROPENIA
     Dosage: 300 UG, 1X/DAY
     Route: 041
     Dates: start: 20071228, end: 20080128
  4. CODEINE [Concomitant]
     Indication: COUGH
     Dosage: 40 MG, 3X/DAY
     Route: 048
     Dates: start: 20080103, end: 20080122
  5. URSODEOXYCHOLIC ACID [Concomitant]
     Indication: HEPATIC CANDIDIASIS
     Dosage: 200 MG, 3X/DAY
     Route: 048
     Dates: start: 20071222, end: 20080204
  6. SILYMARIN [Concomitant]
     Indication: HEPATIC CANDIDIASIS
     Dosage: 140 MG, 2X/DAY
     Route: 048
     Dates: start: 20071222, end: 20080204
  7. CEFEPIME [Concomitant]
     Indication: FEBRILE NEUTROPENIA
     Dosage: 1 G, 1X/DAY
     Route: 041
     Dates: start: 20080118, end: 20080122
  8. IMIPENEM [Concomitant]
     Indication: FEBRILE NEUTROPENIA
     Dosage: 500 MG, 2X/DAY
     Route: 041
     Dates: start: 20080122, end: 20080227
  9. ASCORBIC ACID [Concomitant]
     Indication: VITAMIN SUPPLEMENTATION
     Dosage: 1 TABLET, 1X/DAY
     Route: 048
     Dates: start: 20080129, end: 20080204
  10. VANCOMYCIN [Concomitant]
     Indication: PNEUMONIA
     Dosage: 1000 MG, 1X/DAY
     Route: 041
     Dates: start: 20080127, end: 20080130
  11. VITAMIN B COMPLEX CAP [Concomitant]
     Indication: MEDICAL DIET
     Dosage: 1 DF, 1X/DAY
     Route: 048
     Dates: start: 20080129, end: 20080204

REACTIONS (1)
  - CONVULSION [None]
